FAERS Safety Report 21743091 (Version 2)
Quarter: 2023Q1

REPORT INFORMATION
  Report Type: Report from Study
  Country: US (occurrence: US)
  Receive Date: 20221217
  Receipt Date: 20230330
  Transmission Date: 20230418
  Serious: No
  Sender: FDA-Public Use
  Company Number: US-ABBVIE-4195513

PATIENT
  Sex: Female

DRUGS (3)
  1. SKYRIZI [Suspect]
     Active Substance: RISANKIZUMAB-RZAA
     Indication: Psoriasis
     Dosage: FORM STRENGTH 150 MILLIGRAM?WEEK 4
     Route: 058
     Dates: start: 20220909
  2. SKYRIZI [Suspect]
     Active Substance: RISANKIZUMAB-RZAA
     Dosage: FORM STRENGTH 150 MILLIGRAM?WEEK 0
     Route: 058
     Dates: start: 202208, end: 202208
  3. SKYRIZI [Suspect]
     Active Substance: RISANKIZUMAB-RZAA
     Dosage: EVERY 12 WEEK?FORM STRENGTH: 150MG
     Route: 058
     Dates: start: 20221202

REACTIONS (12)
  - Drug ineffective [Unknown]
  - Chills [Unknown]
  - Pain [Unknown]
  - Loss of personal independence in daily activities [Unknown]
  - Fatigue [Unknown]
  - Nasopharyngitis [Recovered/Resolved]
  - Headache [Unknown]
  - Feeling hot [Unknown]
  - Nasal congestion [Unknown]
  - Hyperhidrosis [Unknown]
  - Nasopharyngitis [Unknown]
  - General physical health deterioration [Unknown]

NARRATIVE: CASE EVENT DATE: 20220101
